FAERS Safety Report 7861387-0 (Version None)
Quarter: 2011Q4

REPORT INFORMATION
  Report Type: 
  Country: None (occurrence: None)
  Receive Date: 20111027
  Receipt Date: 20111024
  Transmission Date: 20120403
  Serious: Yes (Hospitalization, Disabling, Other)
  Sender: FDA-Public Use
  Company Number: US-B.I. PHARMACEUTICALS,INC./RIDGEFIELD-2011-BP-18115BP

PATIENT
  Age: 66 Year
  Sex: Male
  Weight: 100 kg

DRUGS (6)
  1. TRICOR [Concomitant]
  2. DIOVAN [Concomitant]
  3. ATENOLOL [Concomitant]
  4. PRADAXA [Suspect]
  5. SIMVASTATIN [Concomitant]
  6. PLAVIX [Concomitant]

REACTIONS (1)
  - ISCHAEMIC STROKE [None]
